FAERS Safety Report 18009106 (Version 1)
Quarter: 2020Q3

REPORT INFORMATION
  Report Type: Spontaneous
  Country: US (occurrence: US)
  Receive Date: 20200710
  Receipt Date: 20200710
  Transmission Date: 20201103
  Serious: Yes (Other)
  Sender: FDA-Public Use
  Company Number: US-SAOL THERAPEUTICS-2019SAO00439

PATIENT
  Sex: Male

DRUGS (11)
  1. OXYCONTIN [Concomitant]
     Active Substance: OXYCODONE HYDROCHLORIDE
  2. LIORESAL [Suspect]
     Active Substance: BACLOFEN
     Dosage: ABOVE 300 ?G, \DAY
     Route: 037
  3. MORPHINE [Suspect]
     Active Substance: MORPHINE
     Indication: PAIN
     Dosage: UNK, RECEIVED DIFFERENT CONCENTRATIONS OF MORPHINE; INCREASED ABOUT 0.1% EVERY MONTH
     Route: 037
  4. UNSPECIFIED PAIN MEDICATION [Suspect]
     Active Substance: UNSPECIFIED INGREDIENT
     Indication: PAIN
     Route: 037
  5. OPANA [Concomitant]
     Active Substance: OXYMORPHONE HYDROCHLORIDE
     Dosage: 240 MG, \DAY
     Route: 048
  6. LIORESAL [Suspect]
     Active Substance: BACLOFEN
     Indication: SPINAL CORD INJURY
     Dosage: UNK, WOULD RAISE DOSE BY 1% OR SOMETHING
  7. OXYCODONE [Concomitant]
     Active Substance: OXYCODONE
     Dosage: SMALL DOSES
  8. LIORESAL [Suspect]
     Active Substance: BACLOFEN
     Indication: MUSCLE SPASTICITY
     Dosage: UNK ?G, \DAY
     Route: 037
  9. LIORESAL [Suspect]
     Active Substance: BACLOFEN
     Dosage: 343 ?G, \DAY
     Route: 037
  10. OPANA [Concomitant]
     Active Substance: OXYMORPHONE HYDROCHLORIDE
     Dosage: 80 MG, \DAY
     Route: 048
  11. HYDROMORPHONE [Suspect]
     Active Substance: HYDROMORPHONE
     Indication: PAIN
     Dosage: UNK, RECEIVED SEVERAL CONCENTRATIONS OF HYDROMORPHONE; INCREASED ABOUT 0.1% EVERY MONTH
     Route: 037

REACTIONS (7)
  - Pain [Unknown]
  - Unevaluable event [Unknown]
  - Mobility decreased [Unknown]
  - Muscle spasticity [Unknown]
  - Underdose [Unknown]
  - Overdose [Unknown]
  - Hypotonia [Not Recovered/Not Resolved]

NARRATIVE: CASE EVENT DATE: 2007
